FAERS Safety Report 7010833-3 (Version None)
Quarter: 2010Q3

REPORT INFORMATION
  Report Type: 
  Country: None (occurrence: None)
  Receive Date: 20100923
  Receipt Date: 20100923
  Transmission Date: 20110219
  Serious: Yes (Hospitalization)
  Sender: FDA-Public Use
  Company Number: None

PATIENT
  Sex: Male
  Weight: 95.5 kg

DRUGS (3)
  1. SOLIRIS [Suspect]
     Indication: PROPHYLAXIS AGAINST TRANSPLANT REJECTION
     Dosage: 1200 MG ONCE IV 900 MG FIFTEEN IV
     Route: 042
     Dates: start: 20100803, end: 20100824
  2. SOLIRIS [Suspect]
     Indication: PROPHYLAXIS AGAINST TRANSPLANT REJECTION
     Dosage: 1200 MG ONCE IV 900 MG FIFTEEN IV
     Route: 042
     Dates: start: 20100727
  3. SOLIRIS [Suspect]
     Indication: PROPHYLAXIS AGAINST TRANSPLANT REJECTION
     Dosage: 1200 MG ONCE IV 900 MG FIFTEEN IV
     Route: 042
     Dates: start: 20100728

REACTIONS (12)
  - BLOOD CULTURE POSITIVE [None]
  - BLOOD PRESSURE DECREASED [None]
  - CARDIAC DISORDER [None]
  - COMPLICATIONS OF TRANSPLANTED KIDNEY [None]
  - CULTURE URINE POSITIVE [None]
  - DYSPNOEA [None]
  - ENTEROCOCCAL INFECTION [None]
  - ILEUS [None]
  - RENAL TUBULAR NECROSIS [None]
  - SMALL INTESTINAL OBSTRUCTION [None]
  - TRANSPLANT REJECTION [None]
  - WOUND DEHISCENCE [None]
